FAERS Safety Report 22649465 (Version 1)
Quarter: 2023Q2

REPORT INFORMATION
  Report Type: Spontaneous
  Country: US (occurrence: US)
  Receive Date: 20230628
  Receipt Date: 20230628
  Transmission Date: 20230722
  Serious: Yes (Other)
  Sender: FDA-Public Use
  Company Number: US-MACLEODS PHARMACEUTICALS US LTD-MAC2023041925

PATIENT

DRUGS (13)
  1. TRAMADOL [Suspect]
     Active Substance: TRAMADOL
     Indication: Arthralgia
     Dosage: 2 DOSAGE FORM, QID (50 MG TABLETS FOUR TIMES DAILY)
     Route: 065
     Dates: start: 2017
  2. TRAMADOL [Suspect]
     Active Substance: TRAMADOL
     Indication: Musculoskeletal chest pain
     Dosage: 25 DOSAGE FORM, QD (50 MG PER DAY)
     Route: 065
  3. TRAMADOL [Suspect]
     Active Substance: TRAMADOL
     Dosage: 15 MILLIGRAM, QD 150 MG (THREE TABLETS) FIVE TIMES PER DAY
     Route: 065
     Dates: start: 2021, end: 2021
  4. TRAMADOL [Suspect]
     Active Substance: TRAMADOL
     Dosage: 3 DOSAGE FORM, QID (THREE 50 MG TABLETS) FOUR TIMES A DAY)
     Route: 065
     Dates: start: 2021, end: 2021
  5. TRAMADOL [Suspect]
     Active Substance: TRAMADOL
     Dosage: 180 DOSAGE FORM (180 TABLETS TO TAKE 4 DAILY
     Route: 065
  6. TRAMADOL [Suspect]
     Active Substance: TRAMADOL
     Dosage: 6 DOSAGE FORM, QD (6 TABLETS OF 50 MG PER DAY)
     Route: 065
     Dates: start: 2021, end: 2021
  7. TRAMADOL [Suspect]
     Active Substance: TRAMADOL
     Dosage: 20 DOSAGE FORM, QD (20-25 TABLETS, 50 MG PER DAY)
     Route: 065
  8. TRAMADOL [Suspect]
     Active Substance: TRAMADOL
     Dosage: 1 DOSAGE FORM, TID (50 MG TABLETS DOSED THRICE DAILY)
     Route: 065
     Dates: start: 2011
  9. TRAMADOL [Suspect]
     Active Substance: TRAMADOL
     Dosage: 1 DOSAGE FORM, (ESCALATED DOSE TO FOUR TIMES DAILY)
     Route: 065
  10. OXYCODONE [Suspect]
     Active Substance: OXYCODONE
     Indication: Arthralgia
     Dosage: 4 DOSAGE FORM, QD (WHEN HER TRAMADOL SUPPLY WAS LOW, SHE SUPPLEMENTED WITH OXYCODONE AVERAGING ABOUT
     Route: 065
  11. OXYCODONE [Suspect]
     Active Substance: OXYCODONE
     Indication: Musculoskeletal chest pain
  12. GABAPENTIN [Concomitant]
     Active Substance: GABAPENTIN
     Indication: Musculoskeletal chest pain
     Dosage: UNK (INTERMITTENT USE)
     Route: 065
  13. CYCLOBENZAPRINE [Concomitant]
     Active Substance: CYCLOBENZAPRINE
     Indication: Musculoskeletal chest pain
     Dosage: UNK (INTERMITTENT USE)
     Route: 065

REACTIONS (11)
  - Electric shock sensation [Recovering/Resolving]
  - Discomfort [Recovering/Resolving]
  - Analgesic drug level increased [Unknown]
  - Disturbance in attention [Recovering/Resolving]
  - Drug use disorder [Recovered/Resolved]
  - Agitation [Recovering/Resolving]
  - Anxiety [Recovering/Resolving]
  - Drug dependence [Recovered/Resolved]
  - Drug withdrawal syndrome [Recovering/Resolving]
  - Intentional product misuse [Recovered/Resolved]
  - Overdose [Recovered/Resolved]
